FAERS Safety Report 18332164 (Version 1)
Quarter: 2020Q4

REPORT INFORMATION
  Report Type: Spontaneous
  Country: US (occurrence: US)
  Receive Date: 20201001
  Receipt Date: 20201001
  Transmission Date: 20210113
  Serious: No
  Sender: FDA-Public Use
  Company Number: US-SA-2020SA263148

PATIENT

DRUGS (2)
  1. DUPIXENT [Suspect]
     Active Substance: DUPILUMAB
     Dosage: 300 MG, QOW (DAY 15, UNDER THE SKIN)
     Route: 058
     Dates: start: 2020
  2. DUPIXENT [Suspect]
     Active Substance: DUPILUMAB
     Indication: DERMATITIS ATOPIC
     Dosage: 600 MG, 1X (DAY 1, UNDER THE SKIN)
     Route: 058
     Dates: start: 202008, end: 202008

REACTIONS (2)
  - Pruritus [Unknown]
  - Fungal infection [Unknown]

NARRATIVE: CASE EVENT DATE: 2020
